FAERS Safety Report 9314388 (Version 1)
Quarter: 2013Q2

REPORT INFORMATION
  Report Type: Report from Study
  Country: GB (occurrence: GB)
  Receive Date: 20130529
  Receipt Date: 20130529
  Transmission Date: 20140414
  Serious: Yes (Hospitalization)
  Sender: FDA-Public Use
  Company Number: GB-ROCHE-1228657

PATIENT
  Age: 64 Year
  Sex: Male

DRUGS (6)
  1. BEVACIZUMAB [Suspect]
     Indication: GASTRIC CANCER
     Dosage: DATE OF MOST RECENT ADMINISTRATION: 11/NOV/2011
     Route: 042
     Dates: start: 20110915
  2. CAPECITABINE [Suspect]
     Indication: GASTRIC CANCER
     Dosage: DATE OF MOST RECENT ADMINISTRATION: 15/SEP/2011
     Route: 048
     Dates: start: 20110915
  3. EPIRUBICIN HYDROCHLORIDE [Suspect]
     Indication: GASTRIC CANCER
     Dosage: DATE OF MOST RECENT ADMINISTRATION: 11/NOV/2011
     Route: 042
     Dates: start: 20110915
  4. CISPLATIN [Suspect]
     Indication: GASTRIC CANCER
     Dosage: DATE OF MOST RECENT ADMINISTRATION: 11/NOV/2011
     Route: 042
     Dates: start: 20110915
  5. PARACETAMOL [Concomitant]
     Route: 048
     Dates: start: 20120125
  6. DIGOXIN [Concomitant]
     Route: 048

REACTIONS (1)
  - Anastomotic leak [Recovered/Resolved]
